FAERS Safety Report 11308607 (Version 2)
Quarter: 2015Q3

REPORT INFORMATION
  Report Type: Report from Study
  Country: AR (occurrence: AR)
  Receive Date: 20150724
  Receipt Date: 20150811
  Transmission Date: 20151125
  Serious: Yes (Other)
  Sender: FDA-Public Use
  Company Number: PHHY2015AR087592

PATIENT
  Sex: Female

DRUGS (1)
  1. DIOVAN D [Suspect]
     Active Substance: HYDROCHLOROTHIAZIDE\VALSARTAN
     Indication: HYPERTENSION
     Dosage: UNK (80/12.5 MG), QD
     Route: 065
     Dates: start: 201409

REACTIONS (4)
  - Mitral valve disease [Recovered/Resolved]
  - Angiopathy [Recovered/Resolved]
  - Dyspnoea exertional [Unknown]
  - Arterial thrombosis [Recovered/Resolved]
